FAERS Safety Report 19093044 (Version 1)
Quarter: 2021Q2

REPORT INFORMATION
  Report Type: Spontaneous
  Country: DE (occurrence: DE)
  Receive Date: 20210405
  Receipt Date: 20210405
  Transmission Date: 20210717
  Serious: Yes (Hospitalization)
  Sender: FDA-Public Use
  Company Number: NVSC2021DE051160

PATIENT
  Age: 82 Year
  Sex: Male
  Weight: 56 kg

DRUGS (10)
  1. SALOFALK [Concomitant]
     Indication: ENTERITIS
     Dosage: UNK
     Route: 065
  2. DUODART [Concomitant]
     Active Substance: DUTASTERIDE\TAMSULOSIN
     Indication: PROSTATOMEGALY
     Dosage: UNK
     Route: 065
  3. PANTOPRAZOLE [Suspect]
     Active Substance: PANTOPRAZOLE
     Indication: GASTRIC DISORDER
     Dosage: 10 MG, QD (10 MILLIGRAM, QD)
     Route: 048
  4. ROCALTROL [Concomitant]
     Active Substance: CALCITRIOL
     Indication: HYPOPARATHYROIDISM
     Dosage: UNK
     Route: 065
  5. CALCIUM [Concomitant]
     Active Substance: CALCIUM
     Indication: HYPOPARATHYROIDISM
     Dosage: UNK
     Route: 065
  6. TOREM [Concomitant]
     Active Substance: TORSEMIDE
     Indication: PRODUCT USED FOR UNKNOWN INDICATION
     Dosage: UNK
     Route: 065
  7. L?THYROXIN [Concomitant]
     Active Substance: LEVOTHYROXINE SODIUM
     Indication: THYROIDECTOMY
     Dosage: UNK
     Route: 065
  8. VITAMIN B12 [Concomitant]
     Active Substance: CYANOCOBALAMIN
     Indication: VITAMIN B12 DEFICIENCY
     Dosage: UNK
     Route: 065
  9. PARATHYROID HORMONE [Suspect]
     Active Substance: PARATHYROID HORMONE
     Indication: HYPOPARATHYROIDISM
     Dosage: 25 UG, QD (25 MICROGRAM, 1X/DAY:QD )
     Route: 058
     Dates: start: 20180920
  10. BUDENOFALK [Concomitant]
     Active Substance: BUDESONIDE
     Indication: ENTERITIS
     Dosage: UNK
     Route: 065

REACTIONS (8)
  - Chills [Recovered/Resolved]
  - Gait disturbance [Not Recovered/Not Resolved]
  - Diarrhoea [Recovered/Resolved]
  - Asthenia [Not Recovered/Not Resolved]
  - Product distribution issue [Unknown]
  - Dehydration [Recovering/Resolving]
  - Product dose omission issue [Recovered/Resolved]
  - Weight decreased [Not Recovered/Not Resolved]

NARRATIVE: CASE EVENT DATE: 20200624
